FAERS Safety Report 9362118 (Version 2)
Quarter: 2013Q3

REPORT INFORMATION
  Report Type: Spontaneous
  Country: CA (occurrence: CA)
  Receive Date: 20130621
  Receipt Date: 20130719
  Transmission Date: 20140515
  Serious: Yes (Life-Threatening, Other)
  Sender: FDA-Public Use
  Company Number: CA-ASTRAZENECA-2013SE47418

PATIENT
  Age: 57 Year
  Sex: Female

DRUGS (14)
  1. SEROQUEL [Suspect]
     Indication: DEMENTIA
     Dosage: 12.5 MG OF SEROQUEL IR THREE TIMES DAILY WITH 25 MG AT BEDTIME
     Route: 048
  2. SEROQUEL [Suspect]
     Indication: AGITATION
     Dosage: 12.5 MG OF SEROQUEL IR THREE TIMES DAILY WITH 25 MG AT BEDTIME
     Route: 048
  3. SEROQUEL [Suspect]
     Indication: DEMENTIA
     Route: 048
  4. SEROQUEL [Suspect]
     Indication: AGITATION
     Route: 048
  5. SEROQUEL [Suspect]
     Indication: DEMENTIA
     Route: 048
  6. SEROQUEL [Suspect]
     Indication: AGITATION
     Route: 048
  7. CLONAZEPAM [Concomitant]
  8. AMANTATINE [Concomitant]
  9. CLOPIXOL [Concomitant]
  10. VALPROIC ACID [Concomitant]
  11. SENEKOT [Concomitant]
  12. TRAZODONE [Concomitant]
  13. MEMANTINE [Concomitant]
  14. LAX-A-DAY [Concomitant]

REACTIONS (4)
  - Haemorrhagic stroke [Unknown]
  - Altered state of consciousness [Unknown]
  - Condition aggravated [Unknown]
  - Somnolence [Unknown]
